FAERS Safety Report 8773181 (Version 2)
Quarter: 2012Q4

REPORT INFORMATION
  Report Type: 
  Country: JP (occurrence: JP)
  Receive Date: 20120907
  Receipt Date: 20120918
  Transmission Date: 20130627
  Serious: Yes (Other)
  Sender: FDA-Public Use
  Company Number: JP-SANOFI-AVENTIS-2012SA063761

PATIENT
  Age: 73 Year
  Sex: Male

DRUGS (5)
  1. LASIX [Suspect]
     Indication: EDEMA
     Route: 048
     Dates: start: 20120824
  2. HALCION [Concomitant]
     Route: 048
  3. DIART [Concomitant]
     Route: 048
  4. SPIRONOLACTONE [Concomitant]
     Route: 048
  5. DIGOXIN [Concomitant]
     Route: 048

REACTIONS (2)
  - Syncope [Recovered/Resolved]
  - Coma [Recovered/Resolved]
